FAERS Safety Report 17296321 (Version 1)
Quarter: 2020Q1

REPORT INFORMATION
  Report Type: Spontaneous
  Country: US (occurrence: US)
  Receive Date: 20200122
  Receipt Date: 20200122
  Transmission Date: 20200409
  Serious: Yes (Life-Threatening, Hospitalization, Other)
  Sender: FDA-Public Use
  Company Number: US-MACLEODS PHARMACEUTICALS US LTD-MAC2020024844

PATIENT

DRUGS (6)
  1. QUETIAPINE. [Suspect]
     Active Substance: QUETIAPINE
     Indication: DELIRIUM
     Dosage: UNK, ESCALATING DOSES
     Route: 065
  2. HALOPERIDOL. [Suspect]
     Active Substance: HALOPERIDOL
     Dosage: AS NECESSARY, UP TO 25 MG ENTERALLY EVERY 12 HOURS AND 5 MG INTRAVENOUSLY EVERY 6 HOURS RESPECTIVELY
     Route: 065
  3. MIDAZOLAM HYDROCHLORIDE. [Suspect]
     Active Substance: MIDAZOLAM HYDROCHLORIDE
     Indication: SEDATION
     Dosage: UNK
     Route: 065
  4. HALOPERIDOL. [Suspect]
     Active Substance: HALOPERIDOL
     Indication: DELIRIUM
     Dosage: 25 MILLIGRAM, BID UP TO 25 MG ENTERALLY EVERY 12 HOURS AND 5 MG INTRAVENOUSLY EVERY 6 HOURS RESPECTI
     Route: 065
  5. HYDROMORPHONE [Suspect]
     Active Substance: HYDROMORPHONE
     Indication: SEDATION
     Dosage: UNK
     Route: 065
  6. HALOPERIDOL. [Suspect]
     Active Substance: HALOPERIDOL
     Dosage: 5 MILLIGRAM, QID
     Route: 042

REACTIONS (2)
  - Delirium [Unknown]
  - Parkinsonism [Recovered/Resolved]
